FAERS Safety Report 9238883 (Version 1)
Quarter: 2013Q2

REPORT INFORMATION
  Report Type: Spontaneous
  Country: VE (occurrence: VE)
  Receive Date: 20130418
  Receipt Date: 20130418
  Transmission Date: 20140414
  Serious: Yes (Hospitalization)
  Sender: FDA-Public Use
  Company Number: VE-ROCHE-1215404

PATIENT
  Age: 64 Year
  Sex: Female

DRUGS (4)
  1. XOLAIR [Suspect]
     Indication: ASTHMA
     Route: 058
     Dates: start: 2011
  2. MIFLONIDE [Suspect]
     Indication: ASTHMA
     Route: 050
     Dates: start: 2012
  3. NASONEX [Concomitant]
  4. SINGULAIR [Concomitant]
     Dosage: DAILY
     Route: 065

REACTIONS (3)
  - Bronchitis [Recovered/Resolved]
  - Diabetes mellitus [Not Recovered/Not Resolved]
  - Asthma [Recovered/Resolved]
